FAERS Safety Report 5240534-3 (Version None)
Quarter: 2007Q1

REPORT INFORMATION
  Report Type: 
  Country: None (occurrence: None)
  Receive Date: 20070219
  Receipt Date: 20070208
  Transmission Date: 20070707
  Serious: Yes (Death, Hospitalization)
  Sender: FDA-Public Use
  Company Number: DE-ROCHE-479095

PATIENT
  Age: 72 Year
  Sex: Female
  Weight: 70 kg

DRUGS (4)
  1. CAPECITABINE [Suspect]
     Indication: COLORECTAL CANCER
     Dosage: GIVEN ON DAYS 1-14 EVERY 3 WEEKS.  ADDITIONAL UNITS REPORTED AS ^4000^.
     Route: 048
     Dates: start: 20070111, end: 20070115
  2. BEVACIZUMAB [Suspect]
     Indication: COLORECTAL CANCER
     Dosage: GIVEN ON DAY 1, REPEATED ON DAY 22 AS PER PROTOCOL.
     Route: 042
     Dates: start: 20070111
  3. LISIHEXAL COMP [Concomitant]
     Dosage: DAILE DOSING REPORTED AS ^10/12.5^
     Dates: start: 20070106, end: 20070116
  4. M-LONG 10 [Concomitant]
     Dates: end: 20070116

REACTIONS (1)
  - PULMONARY EMBOLISM [None]
